FAERS Safety Report 6741156-5 (Version None)
Quarter: 2010Q2

REPORT INFORMATION
  Report Type: 
  Country: None (occurrence: None)
  Receive Date: 20100525
  Receipt Date: 20100525
  Transmission Date: 20101027
  Serious: No
  Sender: FDA-Public Use
  Company Number: None

PATIENT
  Weight: 22.9 kg

DRUGS (1)
  1. LEVOTHYROXINE SODIUM [Suspect]
     Dosage: 75 MCG PO DAILY TABLET
     Route: 048

REACTIONS (2)
  - DRUG HYPERSENSITIVITY [None]
  - RASH [None]
